FAERS Safety Report 5384180-X (Version None)
Quarter: 2007Q3

REPORT INFORMATION
  Report Type: 
  Country: None (occurrence: None)
  Receive Date: 20070711
  Receipt Date: 20070702
  Transmission Date: 20080115
  Serious: Yes (Hospitalization)
  Sender: FDA-Public Use
  Company Number: A0661945A

PATIENT
  Sex: Male

DRUGS (1)
  1. COREG [Suspect]
     Indication: DRUG USE FOR UNKNOWN INDICATION
     Dosage: 6.25MG UNKNOWN
     Route: 065

REACTIONS (4)
  - BLOOD GLUCOSE INCREASED [None]
  - DIABETES MELLITUS INADEQUATE CONTROL [None]
  - DYSPNOEA [None]
  - WEIGHT INCREASED [None]
